FAERS Safety Report 14212738 (Version 4)
Quarter: 2018Q3

REPORT INFORMATION
  Report Type: Spontaneous
  Country: IT (occurrence: IT)
  Receive Date: 20171122
  Receipt Date: 20180904
  Transmission Date: 20181010
  Serious: Yes (Other)
  Sender: FDA-Public Use
  Company Number: IT-PFIZER INC-2017500405

PATIENT
  Age: 47 Year
  Sex: Male
  Weight: 85 kg

DRUGS (2)
  1. HALCION [Suspect]
     Active Substance: TRIAZOLAM
     Dosage: 0.25 MG, SINGLE
     Route: 048
     Dates: start: 20171003, end: 20171003
  2. RISPERDAL [Suspect]
     Active Substance: RISPERIDONE
     Dosage: UNK, SINGLE
     Route: 048
     Dates: start: 20171003, end: 20171003

REACTIONS (8)
  - Overdose [Unknown]
  - Tremor [Unknown]
  - Somnolence [Unknown]
  - Hypokinesia [Unknown]
  - Intentional self-injury [Unknown]
  - Intentional product misuse [Unknown]
  - Sopor [Unknown]
  - Sluggishness [Unknown]

NARRATIVE: CASE EVENT DATE: 20171003
